FAERS Safety Report 23084394 (Version 1)
Quarter: 2023Q4

REPORT INFORMATION
  Report Type: Spontaneous
  Country: JP (occurrence: JP)
  Receive Date: 20231019
  Receipt Date: 20231019
  Transmission Date: 20240110
  Serious: Yes (Other)
  Sender: FDA-Public Use
  Company Number: JP-PFIZER INC-202300328291

PATIENT

DRUGS (2)
  1. METHOTREXATE (METHOTREXATE SODIUM) [Suspect]
     Active Substance: METHOTREXATE SODIUM
     Indication: Collagen disorder
     Dosage: 1 DF
     Route: 048
  2. METHOTREXATE (METHOTREXATE SODIUM) [Suspect]
     Active Substance: METHOTREXATE SODIUM
     Indication: Osteitis deformans

REACTIONS (5)
  - Malignant peritoneal neoplasm [Unknown]
  - Intestinal haemorrhage [Unknown]
  - Mucosal disorder [Unknown]
  - Off label use [Unknown]
  - Drug effective for unapproved indication [Unknown]
